FAERS Safety Report 4299610-4 (Version None)
Quarter: 2004Q1

REPORT INFORMATION
  Report Type: 
  Country: None (occurrence: None)
  Receive Date: 20040217
  Receipt Date: 20040202
  Transmission Date: 20041129
  Serious: Yes (Life-Threatening, Hospitalization)
  Sender: FDA-Public Use
  Company Number: 04P-087-0249398-00

PATIENT
  Age: 62 Year
  Sex: Female

DRUGS (4)
  1. SEVOFLURANE [Suspect]
     Indication: ANAESTHESIA
     Dosage: 0.5 - 1.5%, ONCE, INHALATION
     Route: 055
     Dates: start: 20040121, end: 20040121
  2. THIOPENTAL SODIUM [Concomitant]
  3. VECURONIUM BROMIDE [Concomitant]
  4. SULPERAZON [Concomitant]

REACTIONS (3)
  - ALANINE AMINOTRANSFERASE INCREASED [None]
  - ASPARTATE AMINOTRANSFERASE INCREASED [None]
  - SHOCK [None]
